FAERS Safety Report 9393242 (Version 1)
Quarter: 2013Q3

REPORT INFORMATION
  Report Type: Spontaneous
  Country: NL (occurrence: NL)
  Receive Date: 20130710
  Receipt Date: 20130710
  Transmission Date: 20140515
  Serious: Yes (Hospitalization)
  Sender: FDA-Public Use
  Company Number: NL-SANOFI-AVENTIS-2013SA067144

PATIENT
  Age: 40 Year
  Sex: Female

DRUGS (6)
  1. DOCETAXEL [Suspect]
     Indication: PRODUCT USED FOR UNKNOWN INDICATION
     Route: 065
  2. TRASTUZUMAB [Suspect]
     Indication: BREAST CANCER
     Dosage: FORM : SOLUTION
     Route: 058
     Dates: start: 20130415, end: 20130505
  3. TRASTUZUMAB [Suspect]
     Indication: BREAST CANCER
     Dosage: FORM: SOLULTION
     Route: 058
     Dates: start: 20130513
  4. CARBOPLATIN [Suspect]
     Indication: PRODUCT USED FOR UNKNOWN INDICATION
     Route: 065
  5. DEPAKINE [Concomitant]
     Dosage: STRENGTH: 300 MG
     Dates: start: 1999
  6. OXAZEPAM [Concomitant]
     Dates: start: 20120621

REACTIONS (2)
  - Gastric disorder [Recovered/Resolved]
  - Diarrhoea [Recovered/Resolved]
